FAERS Safety Report 17489848 (Version 1)
Quarter: 2020Q1

REPORT INFORMATION
  Report Type: Spontaneous
  Country: US (occurrence: US)
  Receive Date: 20200303
  Receipt Date: 20200303
  Transmission Date: 20200409
  Serious: No
  Sender: FDA-Public Use
  Company Number: US-AKORN PHARMACEUTICALS-2019AKN01456

PATIENT
  Age: 17 Year
  Sex: Male
  Weight: 58.96 kg

DRUGS (4)
  1. PROZAC [Concomitant]
     Active Substance: FLUOXETINE HYDROCHLORIDE
  2. MYORISAN [Suspect]
     Active Substance: ISOTRETINOIN
     Indication: ACNE
     Dosage: 30 MG, 2X/DAY
     Dates: start: 20190305, end: 20190517
  3. MYORISAN [Suspect]
     Active Substance: ISOTRETINOIN
     Dosage: 30 MG, EVERY 48 HOURS, ALTERNATING WITH 30 MG TWICE A DAY
     Dates: start: 20190502, end: 20190517
  4. VYVANSE [Concomitant]
     Active Substance: LISDEXAMFETAMINE DIMESYLATE

REACTIONS (3)
  - Off label use [Recovered/Resolved]
  - Oral discomfort [Unknown]
  - Lip dry [Recovered/Resolved]

NARRATIVE: CASE EVENT DATE: 2019
